FAERS Safety Report 7959881-7 (Version None)
Quarter: 2011Q4

REPORT INFORMATION
  Report Type: 
  Country: None (occurrence: None)
  Receive Date: 20111206
  Receipt Date: 20111129
  Transmission Date: 20120403
  Serious: Yes (Other)
  Sender: FDA-Public Use
  Company Number: PHHY2011CR104787

PATIENT
  Age: 52 Year
  Sex: Male

DRUGS (2)
  1. DICLOFENAC SODIUM [Suspect]
     Indication: PHARYNGOTONSILLITIS
     Dosage: 150 MG, QD
     Route: 048
     Dates: start: 20111124, end: 20111124
  2. UNASYN [Concomitant]
     Dosage: 375 MG, BID
     Route: 048

REACTIONS (5)
  - PRURITUS [None]
  - RESPIRATORY RATE INCREASED [None]
  - DYSPNOEA [None]
  - BRONCHOSPASM [None]
  - ERYTHEMA [None]
